FAERS Safety Report 7935826-0 (Version None)
Quarter: 2011Q4

REPORT INFORMATION
  Report Type: 
  Country: None (occurrence: None)
  Receive Date: 20111123
  Receipt Date: 20111116
  Transmission Date: 20120403
  Serious: Yes (Other)
  Sender: FDA-Public Use
  Company Number: US-JNJFOC-20110410497

PATIENT
  Sex: Male

DRUGS (5)
  1. LEVAQUIN [Suspect]
     Indication: SINUSITIS
     Route: 048
     Dates: start: 20090201
  2. NASONEX [Suspect]
     Indication: HYPERSENSITIVITY
     Route: 065
  3. PREDNISONE TAB [Suspect]
     Indication: PRODUCT USED FOR UNKNOWN INDICATION
     Route: 048
  4. MEDROL [Suspect]
     Indication: HYPERSENSITIVITY
     Route: 065
  5. CIPROFLOXACIN [Suspect]
     Indication: INFECTION
     Route: 065

REACTIONS (6)
  - DEPRESSION [None]
  - TENDON RUPTURE [None]
  - JOINT INJURY [None]
  - ROTATOR CUFF SYNDROME [None]
  - TENDON DISORDER [None]
  - MYALGIA [None]
